FAERS Safety Report 9279508 (Version 1)
Quarter: 2013Q2

REPORT INFORMATION
  Report Type: Report from Study
  Country: RO (occurrence: RO)
  Receive Date: 20130508
  Receipt Date: 20130508
  Transmission Date: 20140414
  Serious: Yes (Hospitalization)
  Sender: FDA-Public Use
  Company Number: RO-BRISTOL-MYERS SQUIBB COMPANY-18590802

PATIENT
  Age: 71 Year
  Sex: Female
  Weight: 89 kg

DRUGS (8)
  1. BLINDED: BYDUREON [Suspect]
     Indication: TYPE 2 DIABETES MELLITUS
     Dosage: LAST DOSE PRIOR TO THE EVENT ON 17JAN13
     Route: 058
     Dates: start: 20121030, end: 20130117
  2. BLINDED: PLACEBO [Suspect]
     Indication: TYPE 2 DIABETES MELLITUS
     Dosage: LAST DOSE PRIOR TO THE EVENT ON 17JAN13
     Route: 058
     Dates: start: 20121030, end: 20130112
  3. PRESTARIUM [Concomitant]
     Indication: HYPERTENSION
     Route: 048
     Dates: start: 2006
  4. METOPROLOL TARTRATE [Concomitant]
     Indication: HYPERTENSION
     Route: 048
     Dates: start: 2006
  5. ASPENTER [Concomitant]
     Indication: HYPERTENSION
     Route: 048
     Dates: start: 2006
  6. PLAVIX [Concomitant]
     Indication: MYOCARDIAL INFARCTION
     Route: 048
     Dates: start: 2006
  7. LESCOL [Concomitant]
     Indication: DYSLIPIDAEMIA
     Route: 048
     Dates: start: 2006
  8. INSULIN [Concomitant]
     Indication: TYPE 2 DIABETES MELLITUS
     Route: 058
     Dates: start: 200009

REACTIONS (1)
  - Pancreatitis acute [Recovered/Resolved]
